FAERS Safety Report 6416958-5 (Version None)
Quarter: 2009Q4

REPORT INFORMATION
  Report Type: 
  Country: None (occurrence: None)
  Receive Date: 20091027
  Receipt Date: 20090518
  Transmission Date: 20100525
  Serious: No
  Sender: FDA-Public Use
  Company Number: US-ALLERGAN-0907051US

PATIENT
  Age: 90 Year
  Sex: Female
  Weight: 63.6 kg

DRUGS (11)
  1. ALPHAGAN P [Suspect]
     Indication: INTRAOCULAR PRESSURE TEST
     Dosage: UNK, UNKNOWN
     Route: 047
     Dates: start: 20090408
  2. CELEBREX [Interacting]
     Indication: ARTHRITIS
     Dosage: 200 MG, PRN
  3. CELEBREX [Interacting]
     Indication: BACK PAIN
  4. CELEBREX [Interacting]
  5. XALATAN [Concomitant]
     Indication: GLAUCOMA
     Dosage: UNK, UNK
  6. XALATAN [Concomitant]
  7. TRUSOPT [Concomitant]
     Indication: GLAUCOMA
     Dosage: UNK, UNK
     Dates: start: 20080101
  8. PILOCARPINE HYDROCHLORIDE [Concomitant]
  9. ENALAPRIL [Concomitant]
     Indication: BLOOD PRESSURE
  10. VITAMINS [Concomitant]
  11. ENALAPRIL MALEATE AND HYDROCHLOROTHIAZIDE [Concomitant]

REACTIONS (5)
  - DIZZINESS [None]
  - DRUG INTERACTION [None]
  - FATIGUE [None]
  - HYPOTENSION [None]
  - SOMNOLENCE [None]
